FAERS Safety Report 8779678 (Version 5)
Quarter: 2012Q4

REPORT INFORMATION
  Report Type: 
  Country: GB (occurrence: GB)
  Receive Date: 20120911
  Receipt Date: 20121220
  Transmission Date: 20130627
  Serious: Yes (Disabling, Other)
  Sender: FDA-Public Use
  Company Number: GB-SANOFI-AVENTIS-2012SA063423

PATIENT
  Age: 71 Year
  Sex: Male

DRUGS (8)
  1. CLOPIDOGREL BISULFATE [Suspect]
     Indication: ANTIPLATELET THERAPY
     Route: 048
     Dates: start: 20120730
  2. ATORVASTATIN [Suspect]
     Indication: HYPERCHOLESTEROLAEMIA
     Dosage: ONE at night
     Route: 048
     Dates: start: 20120803, end: 20120807
  3. ZOCOR [Suspect]
     Indication: HYPERCHOLESTEROLAEMIA
     Dosage: ONE at night
     Route: 048
     Dates: start: 20120730, end: 20120802
  4. EZETROL [Suspect]
     Indication: HYPERCHOLESTEROLAEMIA
     Dosage: dosage form 245
     Route: 048
     Dates: start: 20120808, end: 20120810
  5. ASPIRIN [Concomitant]
     Route: 065
  6. FLUCLOXACILLIN [Concomitant]
     Route: 065
  7. FEXOFENADINE [Concomitant]
     Route: 065
  8. LACTULOSE [Concomitant]
     Route: 065

REACTIONS (2)
  - Dyspnoea [Recovered/Resolved]
  - Cough [Recovered/Resolved]
